FAERS Safety Report 10937821 (Version 2)
Quarter: 2015Q2

REPORT INFORMATION
  Report Type: Spontaneous
  Country: US (occurrence: US)
  Receive Date: 20150321
  Receipt Date: 20150525
  Transmission Date: 20150821
  Serious: No
  Sender: FDA-Public Use
  Company Number: US-JNJFOC-20120404379

PATIENT
  Sex: Male
  Weight: 95.26 kg

DRUGS (7)
  1. STELARA [Suspect]
     Active Substance: USTEKINUMAB
     Indication: PSORIASIS
     Route: 058
     Dates: start: 2011
  2. AMLODIPINE [Concomitant]
     Active Substance: AMLODIPINE BESYLATE
     Indication: HYPERTENSION
     Dosage: 5-10 MG
     Route: 048
     Dates: start: 2003
  3. MEGA MEN MULTI-VITAMIN [Concomitant]
     Indication: ASTHENIA
     Dosage: 5-10 MG
     Route: 065
     Dates: start: 201203
  4. LIPITOR [Concomitant]
     Active Substance: ATORVASTATIN CALCIUM
     Indication: BLOOD CHOLESTEROL INCREASED
     Dosage: 5-10 MG
     Route: 048
     Dates: start: 2003
  5. STELARA [Suspect]
     Active Substance: USTEKINUMAB
     Indication: PSORIASIS
     Route: 058
     Dates: start: 20110516, end: 2011
  6. MULTIVITAMINS [Concomitant]
     Active Substance: VITAMINS
     Indication: ASTHENIA
     Dosage: 5-10 MG
     Route: 065
     Dates: end: 201203
  7. ECOTRIN [Concomitant]
     Active Substance: ASPIRIN
     Indication: CARDIAC DISORDER
     Dosage: 5-10 MG
     Route: 048
     Dates: start: 2003

REACTIONS (3)
  - Psoriasis [Not Recovered/Not Resolved]
  - Drug ineffective [Unknown]
  - Inappropriate schedule of drug administration [Unknown]

NARRATIVE: CASE EVENT DATE: 2011
